FAERS Safety Report 23071814 (Version 2)
Quarter: 2023Q4

REPORT INFORMATION
  Report Type: Report from Study
  Country: US (occurrence: US)
  Receive Date: 20231017
  Receipt Date: 20231215
  Transmission Date: 20240109
  Serious: Yes (Hospitalization, Other)
  Sender: FDA-Public Use
  Company Number: US-ABBVIE-5451088

PATIENT
  Sex: Female
  Weight: 60 kg

DRUGS (8)
  1. SKYRIZI [Suspect]
     Active Substance: RISANKIZUMAB-RZAA
     Indication: Psoriasis
     Route: 058
     Dates: start: 20230602
  2. METFORMIN [Concomitant]
     Active Substance: METFORMIN HYDROCHLORIDE
     Indication: Product used for unknown indication
     Dates: start: 2020
  3. CIPRODIAZOLE [Concomitant]
     Indication: Product used for unknown indication
  4. ACETAMINOPHEN [Concomitant]
     Active Substance: ACETAMINOPHEN
     Indication: Product used for unknown indication
  5. ANTINAL [Concomitant]
     Indication: Product used for unknown indication
     Route: 048
  6. LACTOBACILLUS ACIDOPHILUS [Concomitant]
     Active Substance: LACTOBACILLUS ACIDOPHILUS
     Indication: Product used for unknown indication
  7. IMODIUM [Concomitant]
     Active Substance: LOPERAMIDE HYDROCHLORIDE
     Indication: Product used for unknown indication
  8. COLOVERIN [Concomitant]
     Indication: Product used for unknown indication
     Dosage: TABS /8 HOUR

REACTIONS (42)
  - Gastroenteritis [Recovered/Resolved]
  - Vomiting [Unknown]
  - Decreased appetite [Recovering/Resolving]
  - Heat stroke [Recovered/Resolved]
  - Diarrhoea [Not Recovered/Not Resolved]
  - Dehydration [Recovered/Resolved]
  - Abdominal pain [Unknown]
  - Pyrexia [Recovered/Resolved]
  - Nausea [Unknown]
  - Pallor [Unknown]
  - Lethargy [Unknown]
  - Asthenia [Not Recovered/Not Resolved]
  - Immobile [Unknown]
  - Lip dry [Unknown]
  - Fatigue [Unknown]
  - Motor dysfunction [Unknown]
  - Dyspnoea [Recovering/Resolving]
  - Dehydration [Unknown]
  - Electrolyte imbalance [Unknown]
  - Pancreas infection [Unknown]
  - Tachycardia [Unknown]
  - Abdominal tenderness [Unknown]
  - Abdominal distension [Unknown]
  - Abdominal discomfort [Unknown]
  - Gastrointestinal sounds abnormal [Unknown]
  - Confusional state [Unknown]
  - Disorientation [Unknown]
  - Speech disorder [Unknown]
  - Acute kidney injury [Unknown]
  - Skin turgor decreased [Unknown]
  - Dry skin [Unknown]
  - Capillary nail refill test abnormal [Unknown]
  - Respiratory disorder [Unknown]
  - Wheezing [Unknown]
  - Altered state of consciousness [Unknown]
  - Crepitations [Unknown]
  - Hypertension [Unknown]
  - Dry mouth [Unknown]
  - Skin turgor decreased [Unknown]
  - Muscle rigidity [Unknown]
  - Ischaemia [Unknown]
  - Dizziness [Not Recovered/Not Resolved]

NARRATIVE: CASE EVENT DATE: 20230101
